FAERS Safety Report 10445581 (Version 2)
Quarter: 2014Q3

REPORT INFORMATION
  Report Type: Spontaneous
  Country: US (occurrence: US)
  Receive Date: 20140908
  Receipt Date: 20140908
  Transmission Date: 20150326
  Serious: No
  Sender: FDA-Public Use
  Company Number: US-BRISTOL-MYERS SQUIBB COMPANY-20729208

PATIENT
  Age: 58 Year
  Sex: Male
  Weight: 83.9 kg

DRUGS (8)
  1. PROPRANOLOL [Concomitant]
     Active Substance: PROPRANOLOL\PROPRANOLOL HYDROCHLORIDE
  2. HYDROCODONE [Concomitant]
     Active Substance: HYDROCODONE
     Dosage: 1DF:7.5 UNITS NOS
  3. HYDROCHLOROTHIAZIDE. [Concomitant]
     Active Substance: HYDROCHLOROTHIAZIDE
  4. AMITRIPTYLINE [Concomitant]
     Active Substance: AMITRIPTYLINE
  5. ALPRAZOLAM. [Concomitant]
     Active Substance: ALPRAZOLAM
  6. VOLTAREN [Concomitant]
     Active Substance: DICLOFENAC SODIUM
  7. ABILIFY [Suspect]
     Active Substance: ARIPIPRAZOLE
     Dosage: INTRPTD IN APR2011
     Dates: start: 201008
  8. PANTOPRAZOLE [Concomitant]
     Active Substance: PANTOPRAZOLE SODIUM

REACTIONS (7)
  - Palpitations [Unknown]
  - Body temperature increased [Unknown]
  - Blood glucose increased [Unknown]
  - Dizziness [Unknown]
  - Weight increased [Unknown]
  - Hypertension [Unknown]
  - Muscle twitching [Unknown]
